FAERS Safety Report 4997799-2 (Version None)
Quarter: 2006Q2

REPORT INFORMATION
  Report Type: 
  Country: None (occurrence: None)
  Receive Date: 20060510
  Receipt Date: 20050629
  Transmission Date: 20061013
  Serious: No
  Sender: FDA-Public Use
  Company Number: US-BRISTOL-MYERS SQUIBB COMPANY-13020060

PATIENT
  Age: 92 Year
  Sex: Male
  Weight: 65 kg

DRUGS (10)
  1. MONOPRIL [Suspect]
  2. GLUCOPHAGE [Suspect]
  3. GLUCOVANCE [Suspect]
     Dosage: ^2.5 MG/5 MG^
  4. TOPROL-XL [Concomitant]
  5. AVANDIA [Concomitant]
  6. ECOTRIN [Concomitant]
  7. PROSCAR [Concomitant]
  8. LASIX [Concomitant]
  9. POTASSIUM [Concomitant]
  10. ULTRAM [Concomitant]

REACTIONS (3)
  - BURNING SENSATION [None]
  - PRURITUS GENERALISED [None]
  - RASH [None]
